FAERS Safety Report 18905059 (Version 1)
Quarter: 2021Q1

REPORT INFORMATION
  Report Type: Spontaneous
  Country: US (occurrence: US)
  Receive Date: 20210217
  Receipt Date: 20210217
  Transmission Date: 20210420
  Serious: No
  Sender: FDA-Public Use
  Company Number: US-TAKEDA-2021TUS008234

PATIENT
  Age: 40 Year
  Sex: Female
  Weight: 69 kg

DRUGS (6)
  1. GAMMAGARD LIQUID [Suspect]
     Active Substance: HUMAN IMMUNOGLOBULIN G
     Indication: PRODUCT USED FOR UNKNOWN INDICATION
     Dosage: 150 MILLILITER, Q3WEEKS
     Route: 042
     Dates: start: 202011
  2. MAG OXIDE [Concomitant]
     Active Substance: MAGNESIUM OXIDE
     Dosage: 250?400 MILLIGRAM, QD
     Route: 065
  3. BREO ELLIPTA [Concomitant]
     Active Substance: FLUTICASONE FUROATE\VILANTEROL TRIFENATATE
     Indication: BRONCHIAL HYPERREACTIVITY
     Dosage: UNK UNK, QD
     Route: 065
  4. LINZESS [Concomitant]
     Active Substance: LINACLOTIDE
     Dosage: 45 MILLIGRAM, QD
     Route: 065
  5. VITAMIN D [COLECALCIFEROL] [Concomitant]
     Active Substance: CHOLECALCIFEROL
     Indication: VITAMIN D DECREASED
     Dosage: 5000 INTERNATIONAL UNIT, QD
     Route: 065
  6. VITAMIN B [Concomitant]
     Active Substance: VITAMIN B
     Dosage: 10 MILLIGRAM
     Route: 065

REACTIONS (9)
  - Visual impairment [Unknown]
  - Migraine [Unknown]
  - Toxicity to various agents [Unknown]
  - Burning sensation [Unknown]
  - Headache [Unknown]
  - Blood pressure decreased [Unknown]
  - Dizziness [Unknown]
  - Tremor [Unknown]
  - Anxiety [Unknown]

NARRATIVE: CASE EVENT DATE: 20201203
